FAERS Safety Report 4367383-2 (Version None)
Quarter: 2004Q2

REPORT INFORMATION
  Report Type: 
  Country: None (occurrence: None)
  Receive Date: 20040521
  Receipt Date: 20031215
  Transmission Date: 20050107
  Serious: Yes (Other)
  Sender: FDA-Public Use
  Company Number: PHEH2003US11433

PATIENT
  Age: 79 Year
  Sex: Male

DRUGS (2)
  1. TEGRETOL-XR [Suspect]
     Indication: CONVULSION
     Dosage: 200 MG, QD, ORAL
     Route: 048
     Dates: start: 19950101, end: 20031209
  2. TEGRETOL [Suspect]
     Indication: CONVULSION
     Dosage: 200 MG, QD, ORAL
     Route: 048
     Dates: start: 20031210

REACTIONS (3)
  - CONFUSIONAL STATE [None]
  - DISTURBANCE IN ATTENTION [None]
  - DIZZINESS [None]
